FAERS Safety Report 7434910-8 (Version None)
Quarter: 2011Q2

REPORT INFORMATION
  Report Type: 
  Country: None (occurrence: None)
  Receive Date: 20110425
  Receipt Date: 20110215
  Transmission Date: 20111010
  Serious: Yes (Hospitalization, Other)
  Sender: FDA-Public Use
  Company Number: US-ROCHE-770935

PATIENT
  Sex: Female

DRUGS (2)
  1. CAPECITABINE [Suspect]
     Route: 065
  2. HERCEPTIN [Suspect]
     Route: 065
     Dates: start: 20090114

REACTIONS (12)
  - PLEURAL EFFUSION [None]
  - DISEASE PROGRESSION [None]
  - UPPER RESPIRATORY TRACT INFECTION [None]
  - CARDIAC TAMPONADE [None]
  - ELLIPTOCYTOSIS [None]
  - BLOOD LACTATE DEHYDROGENASE INCREASED [None]
  - DECREASED APPETITE [None]
  - LARYNGITIS [None]
  - HAEMOGLOBIN [None]
  - CONSTIPATION [None]
  - INSOMNIA [None]
  - HYPERSENSITIVITY [None]
